FAERS Safety Report 10673226 (Version 2)
Quarter: 2015Q1

REPORT INFORMATION
  Report Type: Spontaneous
  Country: JP (occurrence: JP)
  Receive Date: 20141224
  Receipt Date: 20150130
  Transmission Date: 20150720
  Serious: Yes (Hospitalization)
  Sender: FDA-Public Use
  Company Number: JP-TAKEDA-2014TJP017314

PATIENT
  Age: 74 Year
  Sex: Male
  Weight: 65.2 kg

DRUGS (3)
  1. GLUCOBAY [Concomitant]
     Active Substance: ACARBOSE
     Indication: TYPE 2 DIABETES MELLITUS
     Dosage: 100 MG, BID
     Dates: start: 20140617, end: 20140625
  2. NESINA [Suspect]
     Active Substance: ALOGLIPTIN BENZOATE
     Indication: TYPE 2 DIABETES MELLITUS
     Dosage: 6.25 MG, QD
     Route: 048
     Dates: start: 20140520, end: 20140603
  3. GLUCOBAY [Concomitant]
     Active Substance: ACARBOSE
     Dosage: 100 MG, BID
     Route: 048
     Dates: start: 20140701, end: 20140802

REACTIONS (1)
  - Drug hypersensitivity [Recovering/Resolving]

NARRATIVE: CASE EVENT DATE: 20140603
